FAERS Safety Report 7819813-9 (Version None)
Quarter: 2011Q4

REPORT INFORMATION
  Report Type: 
  Country: None (occurrence: None)
  Receive Date: 20111018
  Receipt Date: 20110207
  Transmission Date: 20120403
  Serious: No
  Sender: FDA-Public Use
  Company Number: US-ASTRAZENECA-2011SE07124

PATIENT
  Age: 14 Year
  Sex: Female

DRUGS (5)
  1. SYMBICORT [Suspect]
     Indication: ASTHMA
     Dosage: 1 PUFFS BID
     Route: 055
     Dates: start: 20090101
  2. ZYRTEC [Concomitant]
  3. PREDNISONE [Concomitant]
  4. ALBUTEROL [Concomitant]
     Dosage: FOUR TIMES DAILY
  5. VERAMYST [Concomitant]
     Route: 045

REACTIONS (8)
  - IMPETIGO [None]
  - NASOPHARYNGITIS [None]
  - BRONCHITIS [None]
  - GASTRIC INFECTION [None]
  - ASTHMA [None]
  - RASH GENERALISED [None]
  - SINUSITIS [None]
  - CHEST DISCOMFORT [None]
